FAERS Safety Report 25244595 (Version 1)
Quarter: 2025Q2

REPORT INFORMATION
  Report Type: Other
  Country: GB (occurrence: GB)
  Receive Date: 20250428
  Receipt Date: 20250428
  Transmission Date: 20250716
  Serious: Yes (Other)
  Sender: BIOCON
  Company Number: None

PATIENT

DRUGS (3)
  1. ADALIMUMAB [Suspect]
     Active Substance: ADALIMUMAB
     Indication: Hidradenitis
     Route: 065
     Dates: start: 20221222
  2. ACITRETIN [Concomitant]
     Active Substance: ACITRETIN
     Indication: Hidradenitis
     Route: 065
     Dates: start: 20180630
  3. BENADRYL ALLERGY RELIEF [Concomitant]
     Indication: Seasonal allergy
     Route: 065
     Dates: start: 20150912

REACTIONS (1)
  - Joint swelling [Not Recovered/Not Resolved]

NARRATIVE: CASE EVENT DATE: 20250310
